FAERS Safety Report 6921165-3 (Version None)
Quarter: 2010Q3

REPORT INFORMATION
  Report Type: 
  Country: None (occurrence: None)
  Receive Date: 20100812
  Receipt Date: 20100804
  Transmission Date: 20110219
  Serious: Yes (Death, Hospitalization)
  Sender: FDA-Public Use
  Company Number: US-ALEXION-A201000791

PATIENT
  Sex: Female

DRUGS (6)
  1. SOLIRIS [Suspect]
     Indication: PAROXYSMAL NOCTURNAL HAEMOGLOBINURIA
     Dosage: UNK
     Route: 042
     Dates: end: 20100423
  2. AMBIEN [Concomitant]
     Route: 048
  3. CELEXA [Concomitant]
     Route: 048
  4. COUMADIN [Concomitant]
     Dosage: UNK
     Route: 048
     Dates: end: 20100501
  5. FLONASE [Concomitant]
     Route: 045
  6. PEPCID [Concomitant]
     Route: 048

REACTIONS (5)
  - APHASIA [None]
  - CEREBROVASCULAR ACCIDENT [None]
  - RESPIRATORY ARREST [None]
  - SEPSIS [None]
  - SOMNOLENCE [None]
